FAERS Safety Report 24288520 (Version 2)
Quarter: 2024Q3

REPORT INFORMATION
  Report Type: Report from Study
  Country: US (occurrence: US)
  Receive Date: 20240906
  Receipt Date: 20240911
  Transmission Date: 20241016
  Serious: Yes (Other)
  Sender: ABBVIE
  Company Number: US-ABBVIE-5907415

PATIENT
  Age: 56 Year
  Sex: Female

DRUGS (2)
  1. HUMIRA [Suspect]
     Active Substance: ADALIMUMAB
     Indication: Product used for unknown indication
     Dosage: LAST ADMIN DATE: 2024
     Route: 058
     Dates: start: 20240306
  2. HUMIRA [Suspect]
     Active Substance: ADALIMUMAB
     Dosage: FIRST ADMIN DATE: 2024
     Route: 058

REACTIONS (2)
  - Cardiac operation [Recovering/Resolving]
  - Incision site haemorrhage [Recovering/Resolving]

NARRATIVE: CASE EVENT DATE: 20240723
